FAERS Safety Report 10475968 (Version 3)
Quarter: 2014Q4

REPORT INFORMATION
  Report Type: Report from Study
  Country: DE (occurrence: DE)
  Receive Date: 20140925
  Receipt Date: 20141022
  Transmission Date: 20150528
  Serious: Yes (Hospitalization)
  Sender: FDA-Public Use
  Company Number: DE-JNJFOC-20140914677

PATIENT
  Age: 75 Year
  Sex: Female
  Weight: 61 kg

DRUGS (12)
  1. PANTOPRAZOLE [Concomitant]
     Active Substance: PANTOPRAZOLE SODIUM
  2. PALLADON [Concomitant]
     Active Substance: HYDROMORPHONE
  3. PRADAXA [Concomitant]
     Active Substance: DABIGATRAN ETEXILATE MESYLATE
  4. L-THYROXINE [Concomitant]
     Active Substance: LEVOTHYROXINE
  5. IBRUTINIB [Suspect]
     Active Substance: IBRUTINIB
     Indication: CHRONIC LYMPHOCYTIC LEUKAEMIA REFRACTORY
     Route: 048
     Dates: start: 20140715
  6. BELOC ZOK [Concomitant]
     Active Substance: METOPROLOL SUCCINATE
  7. CYMBALTA [Concomitant]
     Active Substance: DULOXETINE HYDROCHLORIDE
  8. VFEND [Concomitant]
     Active Substance: VORICONAZOLE
  9. CANDIO HERMAL [Concomitant]
  10. ACICLOVIR [Concomitant]
     Active Substance: ACYCLOVIR
  11. NOVODIGAL [Concomitant]
     Active Substance: .BETA.-ACETYLDIGOXIN
  12. CALCIUM [Concomitant]
     Active Substance: CALCIUM

REACTIONS (1)
  - Urinary tract infection [Recovered/Resolved]

NARRATIVE: CASE EVENT DATE: 20140916
